FAERS Safety Report 8768260 (Version 1)
Quarter: 2012Q4

REPORT INFORMATION
  Report Type: 
  Country: IT (occurrence: IT)
  Receive Date: 20120905
  Receipt Date: 20120905
  Transmission Date: 20130627
  Serious: Yes (Hospitalization)
  Sender: FDA-Public Use
  Company Number: IT-GLAXOSMITHKLINE-B0828115A

PATIENT
  Age: 29 Year
  Sex: Male

DRUGS (1)
  1. ZOVIRAX [Suspect]
     Indication: VARICELLA
     Dosage: 14G per day
     Route: 048
     Dates: start: 20120601, end: 20120603

REACTIONS (1)
  - Overdose [Recovered/Resolved]
